FAERS Safety Report 17869066 (Version 1)
Quarter: 2020Q2

REPORT INFORMATION
  Report Type: Spontaneous
  Country: US (occurrence: US)
  Receive Date: 20200608
  Receipt Date: 20200608
  Transmission Date: 20200714
  Serious: No
  Sender: FDA-Public Use
  Company Number: US-009507513-2006USA001314

PATIENT
  Sex: Female
  Weight: 65.76 kg

DRUGS (4)
  1. ABRAXANE [Concomitant]
     Active Substance: PACLITAXEL
  2. INTRON A [Suspect]
     Active Substance: INTERFERON ALFA-2B
     Indication: BREAST CANCER
     Dosage: 30,000 UNITS (0.005 ML), THREE TIMES A WEEK (STRENGTH: 18MM IUNIT/3 ML MDV)
     Route: 058
  3. FLUOROURACIL. [Concomitant]
     Active Substance: FLUOROURACIL
  4. CARBOPLATIN. [Concomitant]
     Active Substance: CARBOPLATIN

REACTIONS (2)
  - Product use in unapproved indication [Unknown]
  - Blood count abnormal [Unknown]
